FAERS Safety Report 15992359 (Version 2)
Quarter: 2019Q1

REPORT INFORMATION
  Report Type: Spontaneous
  Country: US (occurrence: US)
  Receive Date: 20190221
  Receipt Date: 20190311
  Transmission Date: 20190418
  Serious: No
  Sender: FDA-Public Use
  Company Number: US-ALLERGAN-1834287US

PATIENT
  Sex: Female

DRUGS (3)
  1. OXYTROL [Suspect]
     Active Substance: OXYBUTYNIN
     Dosage: 1 PATCH EVERY 4 DAYS
     Route: 062
     Dates: start: 20180630
  2. OXYTROL [Suspect]
     Active Substance: OXYBUTYNIN
     Indication: HYPERTONIC BLADDER
     Dosage: UNK
     Route: 062
     Dates: start: 20180719
  3. OXYTROL [Suspect]
     Active Substance: OXYBUTYNIN
     Dosage: 1 PATCH EVERY 4 DAYS
     Route: 062
     Dates: start: 20180715

REACTIONS (2)
  - Drug ineffective [Unknown]
  - Cystitis [Recovered/Resolved]
